FAERS Safety Report 5736497-4 (Version None)
Quarter: 2008Q2

REPORT INFORMATION
  Report Type: 
  Country: None (occurrence: None)
  Receive Date: 20080513
  Receipt Date: 20080505
  Transmission Date: 20081010
  Serious: No
  Sender: FDA-Public Use
  Company Number: RU-ELI_LILLY_AND_COMPANY-RU200804004662

PATIENT
  Sex: Female

DRUGS (4)
  1. DULOXETINE HYDROCHLORIDE [Suspect]
     Indication: MAJOR DEPRESSION
     Dosage: 120 MG, DAILY (1/D)
     Route: 048
     Dates: start: 20080218
  2. IMOVANE [Concomitant]
     Dosage: 7.5 MG, UNK
     Route: 048
     Dates: start: 20080214, end: 20080216
  3. IMOVANE [Concomitant]
     Dosage: 7.5 MG, UNK
     Route: 048
     Dates: start: 20080219, end: 20080220
  4. IMOVANE [Concomitant]
     Dosage: 7.5 MG, UNK
     Route: 048
     Dates: start: 20080222, end: 20080224

REACTIONS (1)
  - BLOOD BILIRUBIN INCREASED [None]
